FAERS Safety Report 15772490 (Version 1)
Quarter: 2018Q4

REPORT INFORMATION
  Report Type: Spontaneous
  Country: FR (occurrence: FR)
  Receive Date: 20181228
  Receipt Date: 20181228
  Transmission Date: 20190205
  Serious: Yes (Other)
  Sender: FDA-Public Use
  Company Number: FR-JNJFOC-20181226321

PATIENT
  Sex: Male

DRUGS (2)
  1. XEPLION [Suspect]
     Active Substance: PALIPERIDONE PALMITATE
     Indication: PRODUCT USED FOR UNKNOWN INDICATION
     Route: 030
  2. LOXAPAC [Concomitant]
     Active Substance: LOXAPINE
     Route: 065

REACTIONS (3)
  - Orbital oedema [Unknown]
  - Exophthalmos [Unknown]
  - Ocular hyperaemia [Unknown]
